FAERS Safety Report 14855031 (Version 1)
Quarter: 2018Q2

REPORT INFORMATION
  Report Type: Spontaneous
  Country: US (occurrence: US)
  Receive Date: 20180507
  Receipt Date: 20180507
  Transmission Date: 20180711
  Serious: No
  Sender: FDA-Public Use
  Company Number: US-ROCHE-1920868

PATIENT
  Age: 90 Year
  Sex: Male
  Weight: 59.02 kg

DRUGS (2)
  1. ESBRIET [Suspect]
     Active Substance: PIRFENIDONE
     Dosage: CAPS BY MOUTH THREE TIMES DAILY WITH FOOD
     Route: 048
     Dates: start: 20170125
  2. ESBRIET [Suspect]
     Active Substance: PIRFENIDONE
     Indication: IDIOPATHIC PULMONARY FIBROSIS
     Route: 048
     Dates: start: 20161206

REACTIONS (3)
  - Dysgeusia [Unknown]
  - Decreased appetite [Unknown]
  - Pruritus [Unknown]

NARRATIVE: CASE EVENT DATE: 20170125
